FAERS Safety Report 10394945 (Version 16)
Quarter: 2015Q3

REPORT INFORMATION
  Report Type: Report from Study
  Country: CA (occurrence: CA)
  Receive Date: 20140820
  Receipt Date: 20150723
  Transmission Date: 20151125
  Serious: Yes (Other)
  Sender: FDA-Public Use
  Company Number: CA-ROCHE-1131731

PATIENT
  Age: 83 Year
  Sex: Female
  Weight: 72 kg

DRUGS (17)
  1. RITUXAN [Suspect]
     Active Substance: RITUXIMAB
     Indication: RHEUMATOID ARTHRITIS
     Dosage: FREQUENCY : DAY 1, 15
     Route: 042
     Dates: start: 20120913, end: 20120913
  2. WARFARIN [Concomitant]
     Active Substance: WARFARIN
     Indication: ATRIAL FIBRILLATION
     Route: 065
     Dates: end: 201312
  3. PREDNISONE. [Concomitant]
     Active Substance: PREDNISONE
     Dosage: INCREASE TO 10MG
     Route: 065
  4. ACTEMRA [Suspect]
     Active Substance: TOCILIZUMAB
     Indication: RHEUMATOID ARTHRITIS
     Route: 042
     Dates: start: 20130111
  5. ACTEMRA [Suspect]
     Active Substance: TOCILIZUMAB
     Route: 042
     Dates: start: 20140107
  6. ACTEMRA [Suspect]
     Active Substance: TOCILIZUMAB
     Route: 042
     Dates: start: 20140624
  7. GABAPENTIN. [Concomitant]
     Active Substance: GABAPENTIN
  8. ACTONEL [Concomitant]
     Active Substance: RISEDRONATE SODIUM
  9. OMEGA 3 [Concomitant]
     Active Substance: OMEGA-3 FATTY ACIDS
  10. ACETAMINOPHEN. [Concomitant]
     Active Substance: ACETAMINOPHEN
     Indication: PREMEDICATION
     Route: 048
     Dates: start: 20120913, end: 20120913
  11. BENADRYL [Suspect]
     Active Substance: DIPHENHYDRAMINE HYDROCHLORIDE
     Indication: PREMEDICATION
     Route: 048
     Dates: start: 20120913, end: 20120913
  12. SOFLAX (CANADA) [Concomitant]
  13. METHYLPREDNISOLON [Concomitant]
     Active Substance: METHYLPREDNISOLONE
     Indication: PREMEDICATION
     Route: 042
     Dates: start: 20120913, end: 20120913
  14. TYLENOL WITH CODEINE [Suspect]
     Active Substance: ACETAMINOPHEN\CODEINE PHOSPHATE
     Indication: PRODUCT USED FOR UNKNOWN INDICATION
     Route: 065
  15. OMEPRAZOL [Concomitant]
     Active Substance: OMEPRAZOLE
  16. XARELTO [Suspect]
     Active Substance: RIVAROXABAN
     Indication: ATRIAL FIBRILLATION
     Route: 065
     Dates: start: 201312
  17. ACTEMRA [Suspect]
     Active Substance: TOCILIZUMAB
     Dosage: LATEST INFUSION : 26/MAY/2015
     Route: 042

REACTIONS (28)
  - Dizziness [Not Recovered/Not Resolved]
  - Nausea [Not Recovered/Not Resolved]
  - Localised infection [Unknown]
  - Back pain [Not Recovered/Not Resolved]
  - Vomiting [Not Recovered/Not Resolved]
  - Abscess oral [Recovering/Resolving]
  - Dry mouth [Unknown]
  - Blood pressure increased [Unknown]
  - Arthropathy [Recovering/Resolving]
  - Arthritis infective [Recovered/Resolved]
  - Ulcer [Recovered/Resolved]
  - Infection [Recovering/Resolving]
  - Diarrhoea [Not Recovered/Not Resolved]
  - Rheumatoid arthritis [Not Recovered/Not Resolved]
  - Fatigue [Not Recovered/Not Resolved]
  - Back pain [Not Recovered/Not Resolved]
  - Limb injury [Unknown]
  - Infection [Recovering/Resolving]
  - Hallucination [Unknown]
  - Epistaxis [Recovered/Resolved]
  - Scab [Unknown]
  - Weight increased [Unknown]
  - Nasopharyngitis [Unknown]
  - Dental caries [Unknown]
  - Wound [Not Recovered/Not Resolved]
  - Oral infection [Recovered/Resolved]
  - Skin ulcer [Recovered/Resolved]
  - Tooth repair [Unknown]

NARRATIVE: CASE EVENT DATE: 20120913
